FAERS Safety Report 7043843-0 (Version None)
Quarter: 2010Q4

REPORT INFORMATION
  Report Type: 
  Country: None (occurrence: None)
  Receive Date: 20101013
  Receipt Date: 20101006
  Transmission Date: 20110411
  Serious: Yes (Disabling)
  Sender: FDA-Public Use
  Company Number: GB-PFIZER INC-2010127281

PATIENT
  Age: 44 Year
  Sex: Female
  Weight: 58 kg

DRUGS (2)
  1. SERTRALINE HYDROCHLORIDE [Suspect]
     Indication: ANXIETY
     Dosage: 50 MG, UNK
     Route: 048
     Dates: start: 20100823, end: 20100927
  2. HYDROXYZINE [Concomitant]
     Indication: ANXIETY
     Dosage: 50 MG, UNK
     Route: 048
     Dates: start: 20100728, end: 20100810

REACTIONS (4)
  - PRODUCT QUALITY ISSUE [None]
  - RETCHING [None]
  - SALIVARY HYPERSECRETION [None]
  - THROAT IRRITATION [None]
